FAERS Safety Report 9835429 (Version 1)
Quarter: 2014Q1

REPORT INFORMATION
  Report Type: Spontaneous
  Country: US (occurrence: US)
  Receive Date: 20140122
  Receipt Date: 20140122
  Transmission Date: 20141002
  Serious: No
  Sender: FDA-Public Use
  Company Number: US-BRISTOL-MYERS SQUIBB COMPANY-19595255

PATIENT
  Age: 90 Year
  Sex: Female

DRUGS (5)
  1. ELIQUIS [Suspect]
     Dates: start: 201306
  2. CHLORTHALIDONE [Concomitant]
  3. BYSTOLIC [Concomitant]
  4. LEVOTHYROXINE [Concomitant]
  5. FUROSEMIDE [Concomitant]

REACTIONS (1)
  - Somnolence [Recovered/Resolved]
